FAERS Safety Report 5235168-0 (Version None)
Quarter: 2007Q1

REPORT INFORMATION
  Report Type: 
  Country: None (occurrence: None)
  Receive Date: 20070207
  Receipt Date: 20070126
  Transmission Date: 20070707
  Serious: Yes (Hospitalization)
  Sender: FDA-Public Use
  Company Number: 2006-02618

PATIENT
  Age: 74 Year
  Sex: Male
  Weight: 57.5 kg

DRUGS (3)
  1. VELCADE [Suspect]
     Indication: B-CELL LYMPHOMA
     Dosage: 2.40 MG, UNK, INTRAVENOUS
     Route: 042
     Dates: start: 20060925, end: 20061002
  2. ZANIDIP (LERCANIDIPINE HYDROCHLORIDE) [Concomitant]
  3. ALLOPURINOL [Concomitant]

REACTIONS (9)
  - CONFUSIONAL STATE [None]
  - DIARRHOEA [None]
  - LUNG DISORDER [None]
  - PARAESTHESIA [None]
  - RENAL FAILURE [None]
  - SEPTIC SHOCK [None]
  - TACHYPNOEA [None]
  - THROMBOCYTOPENIA [None]
  - TOXIC SKIN ERUPTION [None]
